FAERS Safety Report 5133746-0 (Version None)
Quarter: 2006Q4

REPORT INFORMATION
  Report Type: 
  Country: None (occurrence: None)
  Receive Date: 20061018
  Receipt Date: 20060912
  Transmission Date: 20070319
  Serious: Yes (Hospitalization, Other)
  Sender: FDA-Public Use
  Company Number: 2006057397

PATIENT
  Age: 62 Year
  Sex: Female

DRUGS (2)
  1. BEXTRA [Suspect]
     Indication: MONARTHRITIS
     Dosage: 10 MG (10 MG, 1 IN 1 D)
  2. CELEBREX [Suspect]
     Indication: MUSCULOSKELETAL PAIN

REACTIONS (10)
  - ANGINA PECTORIS [None]
  - ATRIAL FIBRILLATION [None]
  - ATRIAL FLUTTER [None]
  - CARDIAC ARREST [None]
  - CARDIAC DISORDER [None]
  - CHEST PAIN [None]
  - HEART RATE INCREASED [None]
  - MYOCARDIAL INFARCTION [None]
  - PALPITATIONS [None]
  - THROMBOSIS [None]
